FAERS Safety Report 4609736-0 (Version None)
Quarter: 2005Q1

REPORT INFORMATION
  Report Type: 
  Country: None (occurrence: None)
  Receive Date: 20050314
  Receipt Date: 20050314
  Transmission Date: 20050727
  Serious: No
  Sender: FDA-Public Use
  Company Number: None

PATIENT
  Sex: Male
  Weight: 74.3899 kg

DRUGS (4)
  1. XOLAIR [Suspect]
     Indication: ASTHMA
     Dosage: 2 INJECTIONS 2 X A MONTH
     Dates: start: 20040315, end: 20041115
  2. ADVAIR DISKUS 100/50 [Concomitant]
  3. THEO-DUR [Concomitant]
  4. FLONASE [Concomitant]

REACTIONS (3)
  - BOWEN'S DISEASE [None]
  - INTESTINAL POLYP [None]
  - MALIGNANT MELANOMA IN SITU [None]
